FAERS Safety Report 5230334-2 (Version None)
Quarter: 2007Q1

REPORT INFORMATION
  Report Type: 
  Country: None (occurrence: None)
  Receive Date: 20070206
  Receipt Date: 20070126
  Transmission Date: 20070707
  Serious: Yes (Hospitalization, Other)
  Sender: FDA-Public Use
  Company Number: US-JNJFOC-20070107102

PATIENT
  Sex: Female

DRUGS (19)
  1. REMICADE [Suspect]
     Route: 042
  2. REMICADE [Suspect]
     Route: 042
  3. REMICADE [Suspect]
     Route: 042
  4. REMICADE [Suspect]
     Route: 042
  5. REMICADE [Suspect]
     Route: 042
  6. REMICADE [Suspect]
     Indication: RHEUMATOID ARTHRITIS
     Route: 042
  7. TYLENOL [Concomitant]
     Indication: PREMEDICATION
  8. SOLU-MEDROL [Concomitant]
     Indication: PREMEDICATION
  9. WELLBUTRIN XL [Concomitant]
     Route: 048
  10. TOPAMAX [Concomitant]
     Route: 048
  11. ESTROGENS SOL/INJ [Concomitant]
  12. IMURAN [Concomitant]
     Route: 048
  13. RELAFIN [Concomitant]
  14. NASONEX [Concomitant]
  15. MUCINEX [Concomitant]
     Route: 048
  16. VITAMIN CAP [Concomitant]
  17. FOLIC ACID [Concomitant]
     Route: 048
  18. NEXIUM [Concomitant]
     Route: 048
  19. CLARITIN [Concomitant]
     Indication: PREMEDICATION

REACTIONS (3)
  - AORTIC VALVE DISEASE [None]
  - CHEST PAIN [None]
  - COUGH [None]
